FAERS Safety Report 21442052 (Version 1)
Quarter: 2022Q4

REPORT INFORMATION
  Report Type: Spontaneous
  Country: US (occurrence: US)
  Receive Date: 20221011
  Receipt Date: 20221011
  Transmission Date: 20230113
  Serious: No
  Sender: FDA-Public Use
  Company Number: US-Sprout Pharmaceuticals, Inc.-2022SP000132

PATIENT
  Age: 61 Year
  Sex: Female

DRUGS (2)
  1. ADDYI [Suspect]
     Active Substance: FLIBANSERIN
     Indication: Product used for unknown indication
     Route: 048
     Dates: start: 20220527, end: 20220527
  2. ADDYI [Suspect]
     Active Substance: FLIBANSERIN
     Route: 048

REACTIONS (8)
  - Energy increased [Unknown]
  - Malaise [Unknown]
  - Headache [Unknown]
  - Dysstasia [Unknown]
  - Intentional product misuse [Recovered/Resolved]
  - Nausea [Unknown]
  - Vertigo [Unknown]
  - Insomnia [Unknown]

NARRATIVE: CASE EVENT DATE: 20220527
